FAERS Safety Report 6334411-4 (Version None)
Quarter: 2009Q3

REPORT INFORMATION
  Report Type: 
  Country: None (occurrence: None)
  Receive Date: 20090831
  Receipt Date: 20070501
  Transmission Date: 20100115
  Serious: Yes (Hospitalization)
  Sender: FDA-Public Use
  Company Number: US-ASTRAZENECA-2008UW23978

PATIENT
  Age: 52 Year
  Sex: Female
  Weight: 81.2 kg

DRUGS (62)
  1. SEROQUEL [Suspect]
     Indication: MAJOR DEPRESSION
     Dosage: 100 MG, 200 MG, 300 MG
     Route: 048
     Dates: start: 20021119
  2. SEROQUEL [Suspect]
     Indication: SLEEP DISORDER
     Dosage: 100 MG, 200 MG, 300 MG
     Route: 048
     Dates: start: 20021119
  3. SEROQUEL [Suspect]
     Dosage: 100-300 MG
     Route: 048
     Dates: start: 20030417
  4. SEROQUEL [Suspect]
     Dosage: 100-300 MG
     Route: 048
     Dates: start: 20030417
  5. ZYPREXA [Concomitant]
     Dates: end: 20021119
  6. CELEXA [Concomitant]
  7. COMBIVENT [Concomitant]
  8. SEREVENT [Concomitant]
  9. ALLEGRA [Concomitant]
  10. PRILOSEC [Concomitant]
     Route: 048
  11. FLONASE [Concomitant]
  12. CEFTIN [Concomitant]
  13. SYNTHROID [Concomitant]
  14. CELEBREX [Concomitant]
  15. ALBUTEROL [Concomitant]
  16. OXYCONTIN [Concomitant]
  17. LOTENSIN [Concomitant]
  18. GLUCOPHAGE [Concomitant]
  19. PHENTERMINE HYDROCHLORIDE [Concomitant]
  20. ZOCOR [Concomitant]
  21. RESTORIL [Concomitant]
  22. ADVAIR HFA [Concomitant]
  23. SINGULAIR [Concomitant]
  24. LIPITOR [Concomitant]
  25. PROTONIX [Concomitant]
  26. CLARITIN [Concomitant]
  27. LEXAPRO [Concomitant]
  28. ATARAX [Concomitant]
  29. ZETIA [Concomitant]
  30. ACTONEL [Concomitant]
  31. ABILIFY [Concomitant]
  32. ALTACE [Concomitant]
  33. CRESTOR [Concomitant]
  34. RISPERDAL [Concomitant]
  35. NAPROXEN [Concomitant]
  36. HYDROCODONE BITARTRATE + ACETAMINOPHEN [Concomitant]
  37. CEPHALEXIN [Concomitant]
  38. ATROVENT [Concomitant]
  39. BIAXIN [Concomitant]
  40. DOXYCYCLINE [Concomitant]
  41. DIFLUCAN [Concomitant]
  42. GUAIFENESIN [Concomitant]
  43. NEXIUM [Concomitant]
     Route: 048
  44. DITUSS G [Concomitant]
  45. METHYLPREDNISOLONE [Concomitant]
     Dosage: 05-JAN-2004, 25-OCT-2004
  46. CYCLOBENZAPRINE [Concomitant]
  47. TRAMADOL HCL [Concomitant]
  48. CLONIDINE [Concomitant]
  49. AUGMENTIN XR [Concomitant]
  50. CIPROFLAXACIN [Concomitant]
  51. HYDROCHLOROTHIAZIDE [Concomitant]
  52. HYOSCYAMINE [Concomitant]
  53. TRICOR [Concomitant]
  54. AMIBID DM [Concomitant]
  55. PENTAZOCINE [Concomitant]
  56. LEVAQUIN [Concomitant]
  57. EFFEXOR XR [Concomitant]
  58. ENALAPRIL MALEATE [Concomitant]
  59. PREMARIN [Concomitant]
  60. METOCLOPRAMIDE [Concomitant]
  61. LISINOPRIL [Concomitant]
  62. DICYCLOMINE [Concomitant]

REACTIONS (3)
  - DIABETES MELLITUS INADEQUATE CONTROL [None]
  - OSTEOARTHRITIS [None]
  - TYPE 2 DIABETES MELLITUS [None]
